FAERS Safety Report 6076970-5 (Version None)
Quarter: 2009Q1

REPORT INFORMATION
  Report Type: 
  Country: None (occurrence: None)
  Receive Date: 20090212
  Receipt Date: 20090212
  Transmission Date: 20090719
  Serious: Yes (Death)
  Sender: FDA-Public Use
  Company Number: None

PATIENT
  Age: 81 Year
  Sex: Female
  Weight: 40.8237 kg

DRUGS (1)
  1. DIGOXIN [Suspect]

REACTIONS (9)
  - BLOOD PRESSURE ABNORMAL [None]
  - CATATONIA [None]
  - CONVULSION [None]
  - DYSPNOEA [None]
  - FAECAL INCONTINENCE [None]
  - GAIT DISTURBANCE [None]
  - SPEECH DISORDER [None]
  - THERAPEUTIC AGENT TOXICITY [None]
  - URINARY INCONTINENCE [None]
